FAERS Safety Report 6062520-6 (Version None)
Quarter: 2009Q1

REPORT INFORMATION
  Report Type: 
  Country: None (occurrence: None)
  Receive Date: 20090203
  Receipt Date: 20090127
  Transmission Date: 20090719
  Serious: Yes (Life-Threatening, Hospitalization, Other)
  Sender: FDA-Public Use
  Company Number: DE-ABBOTT-07P-062-0371093-00

PATIENT
  Sex: Female
  Weight: 71 kg

DRUGS (15)
  1. HUMIRA [Suspect]
     Indication: RHEUMATOID ARTHRITIS
     Route: 058
     Dates: start: 20051201, end: 20061027
  2. METHOTREXATE [Suspect]
     Indication: RHEUMATOID ARTHRITIS
     Dates: start: 20071206
  3. METHOTREXATE [Suspect]
  4. LEFLUNOMIDE [Suspect]
     Indication: DRUG USE FOR UNKNOWN INDICATION
     Dates: start: 20070101
  5. METHOTREXATE [Concomitant]
     Route: 058
     Dates: start: 19840501, end: 20061027
  6. METHOTREXATE [Concomitant]
     Dates: start: 20070608
  7. COXIBE [Concomitant]
     Indication: RHEUMATOID ARTHRITIS
  8. PREDNISOLONE [Concomitant]
     Indication: RHEUMATOID ARTHRITIS
     Route: 048
     Dates: start: 19930901
  9. POTASSIUM CHLORIDE [Concomitant]
     Indication: DRUG USE FOR UNKNOWN INDICATION
     Route: 048
  10. ESOMEPRAZOLE MAGNESIUM [Concomitant]
     Indication: DRUG USE FOR UNKNOWN INDICATION
     Route: 048
  11. METOPROLOL TARTRATE [Concomitant]
     Indication: DRUG USE FOR UNKNOWN INDICATION
     Route: 048
  12. OXYCODONE HCL [Concomitant]
     Indication: DRUG USE FOR UNKNOWN INDICATION
     Route: 048
  13. FENOTEROL [Concomitant]
     Indication: DRUG USE FOR UNKNOWN INDICATION
     Route: 055
  14. METOCLOPRAMID [Concomitant]
     Indication: DRUG USE FOR UNKNOWN INDICATION
     Route: 048
  15. ENOXAPARIN SODIUM [Concomitant]
     Indication: DRUG USE FOR UNKNOWN INDICATION
     Route: 058

REACTIONS (25)
  - ANAEMIA [None]
  - ARTHRITIS BACTERIAL [None]
  - BACK PAIN [None]
  - BACTERIAL PYELONEPHRITIS [None]
  - BLOOD GLUCOSE ABNORMAL [None]
  - BRONCHOPNEUMONIA [None]
  - CAUDA EQUINA SYNDROME [None]
  - CONFUSIONAL STATE [None]
  - EMPYEMA [None]
  - HYPOAESTHESIA [None]
  - HYPONATRAEMIA [None]
  - INTERVERTEBRAL DISC DISORDER [None]
  - INTERVERTEBRAL DISCITIS [None]
  - INTRASPINAL ABSCESS [None]
  - KNEE ARTHROPLASTY [None]
  - LUNG INFILTRATION [None]
  - PARAPARESIS [None]
  - PLEURAL EFFUSION [None]
  - POSTOPERATIVE ABSCESS [None]
  - SEPTIC SHOCK [None]
  - SOMNOLENCE [None]
  - STAPHYLOCOCCAL SEPSIS [None]
  - SYSTEMIC INFLAMMATORY RESPONSE SYNDROME [None]
  - WOUND DRAINAGE [None]
  - WOUND SECRETION [None]
